FAERS Safety Report 18126039 (Version 1)
Quarter: 2020Q3

REPORT INFORMATION
  Report Type: Spontaneous
  Country: US (occurrence: US)
  Receive Date: 20200807
  Receipt Date: 20200807
  Transmission Date: 20201103
  Serious: No
  Sender: FDA-Public Use
  Company Number: US-PURDUE-USA-2020-0151949

PATIENT
  Age: 82 Year
  Sex: Female

DRUGS (3)
  1. BUTRANS [Suspect]
     Active Substance: BUPRENORPHINE
     Dosage: 5 MCG/HR, FOR 1 MONTH
     Route: 062
  2. BUTRANS [Suspect]
     Active Substance: BUPRENORPHINE
     Indication: SPINAL PAIN
     Dosage: 10 MCG/HR, WEEKLY
     Route: 062
  3. BUTRANS [Suspect]
     Active Substance: BUPRENORPHINE
     Dosage: 7.5 MCG/HR, 1 MONTH
     Route: 062

REACTIONS (2)
  - Constipation [Unknown]
  - Nausea [Unknown]
